FAERS Safety Report 7245839-2 (Version None)
Quarter: 2011Q1

REPORT INFORMATION
  Report Type: 
  Country: None (occurrence: None)
  Receive Date: 20110126
  Receipt Date: 20110119
  Transmission Date: 20110831
  Serious: Yes (Hospitalization)
  Sender: FDA-Public Use
  Company Number: US-MERCK-1010USA02734

PATIENT
  Age: 29 Year
  Sex: Female

DRUGS (5)
  1. SINGULAIR [Suspect]
     Indication: ASTHMA
     Route: 048
     Dates: start: 20090101
  2. CYCLOSPORINE [Concomitant]
     Route: 065
  3. CETIRIZINE HYDROCHLORIDE [Concomitant]
     Route: 065
  4. PROVENTIL [Concomitant]
     Route: 065
  5. VITAMINS (UNSPECIFIED) [Concomitant]
     Route: 065

REACTIONS (2)
  - INTRA-UTERINE DEATH [None]
  - DRUG EXPOSURE DURING PREGNANCY [None]
